FAERS Safety Report 10100697 (Version 3)
Quarter: 2014Q2

REPORT INFORMATION
  Report Type: Report from Study
  Country: AU (occurrence: AU)
  Receive Date: 20140423
  Receipt Date: 20140507
  Transmission Date: 20141212
  Serious: Yes (Hospitalization)
  Sender: FDA-Public Use
  Company Number: PHHY2014AU024336

PATIENT
  Age: 92 Year
  Sex: Female

DRUGS (21)
  1. ACLASTA [Suspect]
     Dosage: 5 MG, UNK
     Route: 042
     Dates: start: 20100515
  2. ACLASTA [Suspect]
     Dosage: 5 MG, UNK
     Route: 042
     Dates: start: 20110727
  3. ACLASTA [Suspect]
     Dosage: 5 MG, UNK
     Route: 042
     Dates: start: 20120206
  4. CAL [Concomitant]
  5. CLAMOHEXAL DUO [Concomitant]
  6. CLOPIDOGREL DRLA [Concomitant]
  7. COLOXYL WITH SENNA [Concomitant]
  8. FRUSEMIDE PS [Concomitant]
  9. IMURAN [Concomitant]
  10. LAMICTAL [Concomitant]
  11. LYRICA [Concomitant]
  12. MAXOLON [Concomitant]
  13. METOHEXAL [Concomitant]
  14. MOVICOL [Concomitant]
  15. OSTEVIT-D [Concomitant]
  16. PANAFCORT [Concomitant]
  17. PARACETAMOL [Concomitant]
  18. RANCEF [Concomitant]
  19. RAVOTRIL [Concomitant]
  20. SORBOLENE [Concomitant]
  21. XALATAN [Concomitant]

REACTIONS (6)
  - Fall [Unknown]
  - Cellulitis [Recovered/Resolved]
  - Osteomyelitis [Recovered/Resolved]
  - Mobility decreased [Unknown]
  - Diarrhoea [Not Recovered/Not Resolved]
  - Inappropriate schedule of drug administration [Unknown]
